FAERS Safety Report 15191969 (Version 2)
Quarter: 2018Q3

REPORT INFORMATION
  Report Type: Report from Study
  Country: CR (occurrence: CR)
  Receive Date: 20180724
  Receipt Date: 20180726
  Transmission Date: 20181010
  Serious: Yes (Other)
  Sender: FDA-Public Use
  Company Number: PHHY2018CR053057

PATIENT
  Age: 85 Year
  Sex: Female

DRUGS (1)
  1. DIOVAN [Suspect]
     Active Substance: VALSARTAN
     Indication: PRODUCT USED FOR UNKNOWN INDICATION
     Dosage: 320 MG, UNK
     Route: 065
     Dates: end: 20180701

REACTIONS (1)
  - Hypertensive crisis [Unknown]
